FAERS Safety Report 10003899 (Version 2)
Quarter: 2014Q2

REPORT INFORMATION
  Report Type: Spontaneous
  Country: US (occurrence: US)
  Receive Date: 20140312
  Receipt Date: 20140611
  Transmission Date: 20141212
  Serious: No
  Sender: FDA-Public Use
  Company Number: US-INCYTE CORPORATION-2014IN000141

PATIENT
  Sex: Male

DRUGS (11)
  1. JAKAFI [Suspect]
     Indication: MYELOFIBROSIS
     Dosage: 20 MG, BID
     Route: 048
     Dates: start: 201310
  2. JAKAFI [Suspect]
     Dosage: 5 MG, BID
     Route: 048
     Dates: start: 20131101
  3. LOVASTATIN [Concomitant]
  4. OMEPRAZOLE [Concomitant]
  5. RANITIDINE                         /00550802/ [Concomitant]
  6. LEXAPRO [Concomitant]
  7. DILTIAZEM [Concomitant]
  8. RAMIPRIL [Concomitant]
  9. METOPROLOL [Concomitant]
  10. ALPRAZOLAM [Concomitant]
  11. PRADAXA [Concomitant]

REACTIONS (3)
  - Flatulence [Unknown]
  - Abdominal distension [Unknown]
  - Diarrhoea [Unknown]
